FAERS Safety Report 14919266 (Version 1)
Quarter: 2018Q2

REPORT INFORMATION
  Report Type: Spontaneous
  Country: DE (occurrence: DE)
  Receive Date: 20180521
  Receipt Date: 20180521
  Transmission Date: 20180711
  Serious: Yes (Hospitalization)
  Sender: FDA-Public Use
  Company Number: DE-PFIZER INC-2018205793

PATIENT
  Age: 44 Year
  Sex: Male

DRUGS (9)
  1. AMANTADINE HCL [Concomitant]
     Active Substance: AMANTADINE HYDROCHLORIDE
     Dosage: 100 MG, 2X/DAY (100 MG, 1-1-0-0)
  2. ESCITALOPRAM OXALATE. [Suspect]
     Active Substance: ESCITALOPRAM OXALATE
     Dosage: 20 MG, 1X/DAY (20 MG, 1-0-0)
  3. BORNAPRINE [Suspect]
     Active Substance: BORNAPRINE
     Dosage: 10 MG, DAILY (4 MG, 1-0.5-1-0)
  4. NEUPRO [Suspect]
     Active Substance: ROTIGOTINE
     Dosage: 14 MG, 1X/DAY (14 MG, 1-0-0-0)
     Route: 062
  5. MADOPAR [Concomitant]
     Active Substance: BENSERAZIDE HYDROCHLORIDE\LEVODOPA
     Dosage: 100|25 MG, 1.5-1.5-1.5-1.5
  6. MADOPAR LT [Concomitant]
     Active Substance: BENSERAZIDE HYDROCHLORIDE\LEVODOPA
     Dosage: 100|25 MG, 1-0-0-0
  7. IBUPROFEN. [Suspect]
     Active Substance: IBUPROFEN
     Dosage: UNK
  8. MADOPAR DEPOT [Concomitant]
     Active Substance: BENSERAZIDE HYDROCHLORIDE\LEVODOPA
     Dosage: 1 DF, 1X/DAY (100|25 MG, 0-0-0-1)
  9. AMITRIPTYLIN [Concomitant]
     Active Substance: AMITRIPTYLINE
     Dosage: 75 MG, 1X/DAY (75 MG, 0-0-0-1)

REACTIONS (2)
  - Abdominal pain upper [Unknown]
  - Dyspepsia [Unknown]
